FAERS Safety Report 14337479 (Version 1)
Quarter: 2017Q4

REPORT INFORMATION
  Report Type: Spontaneous
  Country: US (occurrence: US)
  Receive Date: 20171228
  Receipt Date: 20171228
  Transmission Date: 20180321
  Serious: No
  Sender: FDA-Public Use
  Company Number: None

PATIENT
  Age: 19 Year
  Sex: Male

DRUGS (17)
  1. XOLAIR [Suspect]
     Active Substance: OMALIZUMAB
     Indication: ASTHMA
     Route: 058
     Dates: start: 20160512
  2. NOXAFIL [Concomitant]
     Active Substance: POSACONAZOLE
  3. MAGNESIUM [Concomitant]
     Active Substance: MAGNESIUM
  4. ARNUITY ELPT [Concomitant]
  5. GAMMACORE [Concomitant]
  6. FLAGYL [Concomitant]
     Active Substance: METRONIDAZOLE\METRONIDAZOLE HYDROCHLORIDE
  7. CROMOLYN SOD [Concomitant]
  8. STIOLTO RESPIMAT [Concomitant]
     Active Substance: OLODATEROL HYDROCHLORIDE\TIOTROPIUM BROMIDE MONOHYDRATE
  9. MULTIVITAMIN [Concomitant]
     Active Substance: VITAMINS
  10. MUCINEX D [Concomitant]
     Active Substance: GUAIFENESIN\PSEUDOEPHEDRINE HYDROCHLORIDE
  11. VITAMIN B12 [Concomitant]
     Active Substance: CYANOCOBALAMIN
  12. LEVALBUTEROL. [Concomitant]
     Active Substance: LEVALBUTEROL
  13. AMOX/K CLAV [Concomitant]
     Active Substance: AMOXICILLIN\CLAVULANATE POTASSIUM
  14. GAMUNEX-C [Concomitant]
     Active Substance: HUMAN IMMUNOGLOBULIN G
  15. AMPHOTERICIN [Concomitant]
     Active Substance: AMPHOTERICIN B
  16. SALINE NASAL SPR [Concomitant]
  17. XANAX [Concomitant]
     Active Substance: ALPRAZOLAM

REACTIONS (3)
  - Urticaria [None]
  - Pain [None]
  - Pruritus [None]
